FAERS Safety Report 16483153 (Version 1)
Quarter: 2019Q2

REPORT INFORMATION
  Report Type: Spontaneous
  Country: CA (occurrence: CA)
  Receive Date: 20190627
  Receipt Date: 20190627
  Transmission Date: 20190711
  Serious: Yes (Death)
  Sender: FDA-Public Use
  Company Number: CA-PFIZER INC-2018216780

PATIENT
  Sex: Female

DRUGS (1)
  1. ADVIL 12 HOUR [Suspect]
     Active Substance: IBUPROFEN
     Dosage: 1 DF, DAILY
     Route: 048
     Dates: start: 20180525, end: 20180525

REACTIONS (2)
  - Intentional product misuse [Unknown]
  - Death [Fatal]

NARRATIVE: CASE EVENT DATE: 20180525
